FAERS Safety Report 9357514 (Version 1)
Quarter: 2013Q2

REPORT INFORMATION
  Report Type: Spontaneous
  Country: FR (occurrence: None)
  Receive Date: 20130617
  Receipt Date: 20130617
  Transmission Date: 20140414
  Serious: Yes (Other)
  Sender: FDA-Public Use
  Company Number: AUR-APL-2013-04964

PATIENT
  Sex: Female
  Weight: 3.2 kg

DRUGS (4)
  1. LAMOTRIGINE (LAMOTRIGINE) [Suspect]
     Indication: PRODUCT USED FOR UNKNOWN INDICATION
     Route: 064
  2. LEVETIRACETAM (LEVETIRACETAM) [Suspect]
     Route: 064
  3. CLOBAZAM (CLOBAZAM) [Suspect]
     Route: 064
  4. VALPROATE [Suspect]

REACTIONS (3)
  - Hypoglycaemia [None]
  - Hypotonia [None]
  - Exposure during pregnancy [None]
